FAERS Safety Report 23732831 (Version 2)
Quarter: 2024Q4

REPORT INFORMATION
  Report Type: Spontaneous
  Country: US (occurrence: US)
  Receive Date: 20240411
  Receipt Date: 20241209
  Transmission Date: 20250115
  Serious: Yes (Other)
  Sender: PFIZER
  Company Number: US-PFIZER INC-PV202400047496

PATIENT
  Age: 87 Year
  Sex: Female

DRUGS (2)
  1. IBRANCE [Suspect]
     Active Substance: PALBOCICLIB
     Dosage: TAKE 1 TABLET PO (ORALLY) ON DAYS 1-21, THEN TAKE 7 DAYS OFF.
     Route: 048
  2. IBRANCE [Suspect]
     Active Substance: PALBOCICLIB
     Dosage: TAKE 1 TABLET PO (ORALLY) ON DAYS 1-21, THEN TAKE 7 DAYS OFF.
     Route: 048

REACTIONS (1)
  - Neutropenia [Unknown]
